FAERS Safety Report 6348177-5 (Version None)
Quarter: 2009Q3

REPORT INFORMATION
  Report Type: 
  Country: None (occurrence: None)
  Receive Date: 20090908
  Receipt Date: 20090825
  Transmission Date: 20100115
  Serious: Yes (Life-Threatening)
  Sender: FDA-Public Use
  Company Number: JHP200900243

PATIENT
  Age: 74 Year
  Sex: Female

DRUGS (7)
  1. DANTRIUM [Suspect]
     Indication: MUSCLE SPASMS
     Dosage: 25 MG, DAILY, ORAL
     Route: 048
     Dates: start: 20050107, end: 20090717
  2. VERAPAMIL HYDROCHLORIDE [Concomitant]
  3. OLMESARTAN MEDOXOMIL [Concomitant]
  4. FENOFIBRATE [Concomitant]
  5. INDERAL [Concomitant]
  6. NOVOLOG [Concomitant]
  7. LANTUS [Concomitant]

REACTIONS (4)
  - BLOOD POTASSIUM INCREASED [None]
  - CARDIAC ARREST [None]
  - DIALYSIS [None]
  - RESPIRATORY ARREST [None]
